FAERS Safety Report 8790096 (Version 2)
Quarter: 2013Q4

REPORT INFORMATION
  Report Type: Spontaneous
  Country: US (occurrence: US)
  Receive Date: 20120917
  Receipt Date: 20131101
  Transmission Date: 20140711
  Serious: No
  Sender: FDA-Public Use
  Company Number: US-009507513-1209USA002931

PATIENT
  Age: 34 Year
  Sex: Male

DRUGS (5)
  1. SAPHRIS [Suspect]
     Indication: SCHIZOAFFECTIVE DISORDER
     Dosage: UNK
     Route: 048
     Dates: start: 2011
  2. SAPHRIS [Suspect]
     Indication: DEPRESSION
     Dosage: 10 MG, QD (QHS)
     Route: 048
     Dates: start: 201205
  3. SAPHRIS [Suspect]
     Dosage: 5 MG IN THE MORNING AND 10 MG HS , BID
     Route: 048
  4. SAPHRIS [Suspect]
     Dosage: 15 MG, QD (QHS)
     Route: 048
  5. LITHIUM [Concomitant]

REACTIONS (3)
  - Hypoaesthesia oral [Recovering/Resolving]
  - Depression [Unknown]
  - Flat affect [Unknown]
